FAERS Safety Report 4822771-2 (Version None)
Quarter: 2005Q4

REPORT INFORMATION
  Report Type: 
  Country: None (occurrence: None)
  Receive Date: 20051107
  Receipt Date: 20051107
  Transmission Date: 20060501
  Serious: Yes (Hospitalization)
  Sender: FDA-Public Use
  Company Number: None

PATIENT
  Sex: Female
  Weight: 69.8539 kg

DRUGS (2)
  1. CYPHER SIROLIMUS-ELUTING STENT    2.60 MM X 28 MM    CORDIS [Suspect]
     Indication: CORONARY ARTERY OCCLUSION
     Dosage: OTHER
     Route: 050
     Dates: start: 20051113
  2. CYPHER SIROLIMUS-ELUTING STENT    2.60 MM X 28 MM    CORDIS [Suspect]
     Indication: CORONARY ARTERY OCCLUSION
     Dosage: OTHER
     Route: 050
     Dates: start: 20051113

REACTIONS (9)
  - BLOOD PRESSURE INCREASED [None]
  - BODY TEMPERATURE FLUCTUATION [None]
  - CHILLS [None]
  - CONVULSION [None]
  - FATIGUE [None]
  - FEELING COLD [None]
  - HEADACHE [None]
  - RASH [None]
  - TREMOR [None]
